FAERS Safety Report 8060630-5 (Version None)
Quarter: 2012Q1

REPORT INFORMATION
  Report Type: 
  Country: None (occurrence: None)
  Receive Date: 20120119
  Receipt Date: 20120119
  Transmission Date: 20120608
  Serious: No
  Sender: FDA-Public Use
  Company Number: None

PATIENT
  Age: 44 Year
  Sex: Male

DRUGS (5)
  1. TRUVADA [Concomitant]
  2. FLUVASTATIN [Suspect]
     Indication: BLOOD CHOLESTEROL INCREASED
     Dosage: 20 MG DAILY BY MOUTH
     Route: 048
     Dates: start: 20111020
  3. PHENYTOIN [Concomitant]
  4. RITONAVIR [Concomitant]
  5. DARUNAVIR [Concomitant]

REACTIONS (1)
  - CHROMATURIA [None]
